FAERS Safety Report 6554890-7 (Version None)
Quarter: 2010Q1

REPORT INFORMATION
  Report Type: 
  Country: None (occurrence: None)
  Receive Date: 20100125
  Receipt Date: 20100108
  Transmission Date: 20100710
  Serious: Yes (Other)
  Sender: FDA-Public Use
  Company Number: ALL1-2010-00114

PATIENT
  Age: 15 Year
  Sex: Male
  Weight: 72.6 kg

DRUGS (3)
  1. ADDERALL XR 10 [Suspect]
     Indication: ATTENTION DEFICIT/HYPERACTIVITY DISORDER
     Dosage: SEE IMAGE
     Route: 048
     Dates: start: 20010101, end: 20040101
  2. ADDERALL XR 10 [Suspect]
     Indication: ATTENTION DEFICIT/HYPERACTIVITY DISORDER
     Dosage: SEE IMAGE
     Route: 048
     Dates: start: 20040101, end: 20080101
  3. ADDERALL XR 10 [Suspect]
     Indication: ATTENTION DEFICIT/HYPERACTIVITY DISORDER
     Dosage: SEE IMAGE
     Route: 048
     Dates: start: 20080101, end: 20090101

REACTIONS (8)
  - BIPOLAR DISORDER [None]
  - CONDUCT DISORDER [None]
  - DRUG EFFECT DECREASED [None]
  - DRUG EFFECT DELAYED [None]
  - INAPPROPRIATE SCHEDULE OF DRUG ADMINISTRATION [None]
  - LEGAL PROBLEM [None]
  - OVERDOSE [None]
  - SLEEP DISORDER [None]
